FAERS Safety Report 12770267 (Version 1)
Quarter: 2016Q3

REPORT INFORMATION
  Report Type: Spontaneous
  Country: US (occurrence: US)
  Receive Date: 20160922
  Receipt Date: 20160922
  Transmission Date: 20161109
  Serious: Yes (Hospitalization, Other)
  Sender: FDA-Public Use
  Company Number: US-009507513-1609USA006851

PATIENT
  Sex: Male

DRUGS (4)
  1. BRIDION [Suspect]
     Active Substance: SUGAMMADEX
     Indication: NEUROMUSCULAR BLOCKADE REVERSAL
     Dosage: 200 MG/2ML, ONCE
     Route: 042
     Dates: start: 20160907
  2. LIDOCAINE. [Concomitant]
     Active Substance: LIDOCAINE
  3. FENTANYL. [Concomitant]
     Active Substance: FENTANYL
  4. NEOMYCIN [Concomitant]
     Active Substance: NEOMYCIN

REACTIONS (2)
  - Angioedema [Recovered/Resolved]
  - Rash papular [Recovered/Resolved]

NARRATIVE: CASE EVENT DATE: 20160907
